FAERS Safety Report 8481060-8 (Version None)
Quarter: 2012Q3

REPORT INFORMATION
  Report Type: 
  Country: None (occurrence: None)
  Receive Date: 20120702
  Receipt Date: 20120625
  Transmission Date: 20120928
  Serious: Yes (Other)
  Sender: FDA-Public Use
  Company Number: PHHY2012MX039403

PATIENT
  Sex: Female

DRUGS (11)
  1. SUCRALFATE [Concomitant]
  2. BUDESONIDE [Concomitant]
     Indication: ASTHMA
     Dosage: 200 MG, QD
  3. OMEPRAZOLE [Concomitant]
     Dosage: 1 DF, UNK
  4. FORADIL [Suspect]
     Dosage: 1 DF, QD
     Dates: start: 20120401
  5. BUDESONIDE [Concomitant]
     Dosage: 400 MG, QD
  6. FOLIC ACID [Concomitant]
     Dates: start: 20110201
  7. PARACETAMOL [Concomitant]
     Indication: PAIN
     Dosage: 2 DF, PRN
     Dates: start: 20110301
  8. METHOTREXATE [Concomitant]
     Indication: RHEUMATOID ARTHRITIS
     Dosage: 2 DF, EVERY 3 DAYS
  9. FORADIL [Suspect]
     Dosage: 2 DF, DAILY
     Dates: start: 20120501
  10. SULINDAC [Concomitant]
     Dosage: 200 MG, UNK
     Dates: start: 20110201
  11. FORADIL [Suspect]
     Indication: ASTHMA
     Dates: start: 20100101

REACTIONS (6)
  - PRODUCTIVE COUGH [None]
  - DYSPNOEA [None]
  - OXYGEN SATURATION DECREASED [None]
  - INCREASED UPPER AIRWAY SECRETION [None]
  - CONDITION AGGRAVATED [None]
  - MALAISE [None]
